FAERS Safety Report 7265830-X (Version None)
Quarter: 2011Q1

REPORT INFORMATION
  Report Type: 
  Country: None (occurrence: None)
  Receive Date: 20110131
  Receipt Date: 20110128
  Transmission Date: 20110831
  Serious: Yes (Hospitalization)
  Sender: FDA-Public Use
  Company Number: A0894674A

PATIENT
  Age: 60 Year
  Sex: Female

DRUGS (4)
  1. ADVAIR [Suspect]
     Indication: PRODUCT USED FOR UNKNOWN INDICATION
     Route: 055
     Dates: start: 20080926
  2. OTHER MEDICATIONS [Concomitant]
  3. FOSAMAX [Concomitant]
  4. COUMADIN [Concomitant]

REACTIONS (3)
  - PRODUCT QUALITY ISSUE [None]
  - PNEUMONIA [None]
  - DYSPNOEA [None]
